FAERS Safety Report 4610119-8 (Version None)
Quarter: 2005Q1

REPORT INFORMATION
  Report Type: 
  Country: None (occurrence: None)
  Receive Date: 20050316
  Receipt Date: 20040514
  Transmission Date: 20050727
  Serious: Yes (Hospitalization)
  Sender: FDA-Public Use
  Company Number: US-BRISTOL-MYERS SQUIBB COMPANY-12587051

PATIENT
  Age: 3 Year
  Sex: Male
  Weight: 16 kg

DRUGS (1)
  1. ABILIFY [Suspect]
     Dosage: 1/2 OF A 15 MG TABLET; APPROXIMATELY 11.9 MG INGESTED.
     Route: 048
     Dates: start: 20040331, end: 20040331

REACTIONS (6)
  - ACCIDENTAL EXPOSURE [None]
  - EXTRAPYRAMIDAL DISORDER [None]
  - FLAT AFFECT [None]
  - LETHARGY [None]
  - MEDICATION ERROR [None]
  - MENTAL IMPAIRMENT [None]
